FAERS Safety Report 21060999 (Version 1)
Quarter: 2022Q3

REPORT INFORMATION
  Report Type: Spontaneous
  Country: AR (occurrence: AR)
  Receive Date: 20220709
  Receipt Date: 20220709
  Transmission Date: 20221027
  Serious: Yes (Hospitalization, Other)
  Sender: FDA-Public Use
  Company Number: AR-NOVARTISPH-NVSC2022AR155566

PATIENT
  Sex: Female

DRUGS (1)
  1. CALCIUM [Suspect]
     Active Substance: CALCIUM
     Indication: Throat cancer
     Dosage: UNK, QD 2 TO 3 TABLETS PER DAY (STRENGTH: 1000 MG / 1.75 G / 2.263 G) (START DATE: 5 YEARS)
     Route: 065
     Dates: end: 20220630

REACTIONS (4)
  - Seizure [Recovering/Resolving]
  - Loss of consciousness [Recovering/Resolving]
  - Fall [Recovering/Resolving]
  - Product use in unapproved indication [Unknown]
